FAERS Safety Report 6985124-7 (Version None)
Quarter: 2010Q3

REPORT INFORMATION
  Report Type: 
  Country: None (occurrence: None)
  Receive Date: 20100915
  Receipt Date: 20100907
  Transmission Date: 20110219
  Serious: Yes (Hospitalization)
  Sender: FDA-Public Use
  Company Number: NL-SANOFI-AVENTIS-2010SA053617

PATIENT
  Age: 65 Year
  Sex: Male

DRUGS (9)
  1. OXALIPLATIN [Suspect]
     Indication: COLORECTAL CANCER
     Route: 042
     Dates: start: 20091119, end: 20091119
  2. OXALIPLATIN [Suspect]
     Route: 042
     Dates: start: 20100722, end: 20100722
  3. BEVACIZUMAB [Suspect]
     Indication: COLORECTAL CANCER
     Route: 042
     Dates: start: 20091119, end: 20091119
  4. BEVACIZUMAB [Suspect]
     Route: 042
     Dates: start: 20100723, end: 20100723
  5. CAPECITABINE [Suspect]
     Indication: COLORECTAL CANCER
     Route: 048
     Dates: start: 20091119, end: 20091119
  6. CAPECITABINE [Suspect]
     Route: 048
     Dates: start: 20100722, end: 20100722
  7. DEXAMETHASONE [Concomitant]
  8. CARBASALATE CALCIUM [Concomitant]
  9. TRAMADOL [Concomitant]

REACTIONS (1)
  - GASTROINTESTINAL ANASTOMOTIC LEAK [None]
